FAERS Safety Report 17139379 (Version 1)
Quarter: 2019Q4

REPORT INFORMATION
  Report Type: Spontaneous
  Country: SE (occurrence: SE)
  Receive Date: 20191211
  Receipt Date: 20191211
  Transmission Date: 20200122
  Serious: Yes (Death)
  Sender: FDA-Public Use
  Company Number: SE-ACCORD-164640

PATIENT
  Age: 65 Year
  Sex: Male

DRUGS (6)
  1. FLUOROURACIL. [Suspect]
     Active Substance: FLUOROURACIL
     Indication: RECTAL CANCER METASTATIC
     Dosage: A TOTAL OF THREE CURES CURE THREE 810 MG
     Route: 042
     Dates: start: 20191007
  2. OXALIPLATIN. [Suspect]
     Active Substance: OXALIPLATIN
     Indication: RECTAL CANCER METASTATIC
     Dosage: A TOTAL OF THREE TREATMENT, TREATMENT THREE 173MG
     Route: 042
     Dates: start: 20191007
  3. FOLACIN [Concomitant]
  4. ALVEDON [Concomitant]
     Active Substance: ACETAMINOPHEN
  5. ENALAPRIL [Concomitant]
     Active Substance: ENALAPRIL
  6. PREDNISOLONE. [Concomitant]
     Active Substance: PREDNISOLONE

REACTIONS (2)
  - Cardiac arrest [Fatal]
  - Off label use [Unknown]

NARRATIVE: CASE EVENT DATE: 201911
